FAERS Safety Report 7464372-6 (Version None)
Quarter: 2011Q2

REPORT INFORMATION
  Report Type: 
  Country: None (occurrence: None)
  Receive Date: 20110509
  Receipt Date: 20110427
  Transmission Date: 20111010
  Serious: Yes (Death)
  Sender: FDA-Public Use
  Company Number: US-CELGENEUS-163-21880-11043514

PATIENT
  Sex: Male

DRUGS (1)
  1. REVLIMID [Suspect]
     Indication: HODGKIN'S DISEASE
     Dosage: 10 MILLIGRAM
     Route: 048
     Dates: start: 20110101, end: 20110101

REACTIONS (1)
  - DEATH [None]
